FAERS Safety Report 8837502 (Version 1)
Quarter: 2012Q4

REPORT INFORMATION
  Report Type: 
  Country: US (occurrence: US)
  Receive Date: 20121012
  Receipt Date: 20121012
  Transmission Date: 20130627
  Serious: No
  Sender: FDA-Public Use
  Company Number: US-PFIZER INC-2012249677

PATIENT
  Age: 50 Year
  Sex: Female
  Weight: 86.17 kg

DRUGS (18)
  1. REVATIO [Suspect]
     Indication: PULMONARY HYPERTENSION
     Dosage: 20 mg, 3x/day
     Route: 048
     Dates: start: 20120721
  2. PROVENTIL [Concomitant]
     Indication: PULMONARY CONGESTION
     Dosage: 5 mg, as needed
  3. ZYLOPRIM [Concomitant]
     Dosage: 300 mg, 1x/day
  4. OXYGEN [Concomitant]
     Dosage: UNK, as needed
  5. ELAVIL [Concomitant]
     Dosage: 25 mg, 2x/day
  6. LANOXIN [Concomitant]
     Dosage: 125 ug, 1x/day
  7. DIOVAN [Concomitant]
     Indication: HYPERTENSION
     Dosage: 150 mg, UNK
  8. DEMADEX [Concomitant]
     Dosage: 10 mg, as needed
  9. ROCALTROL [Concomitant]
     Dosage: 0.25 ug, UNK
  10. TESSALON [Concomitant]
     Dosage: 100 mg, as needed
  11. COREG [Concomitant]
     Dosage: 25 mg, 2x/day
  12. SYNTHROID [Concomitant]
     Dosage: 112 ug, 2x/day
  13. MEVACOR [Concomitant]
     Dosage: 40 mg, 2x/day
  14. PRIMACOR [Concomitant]
     Dosage: UNK, as needed
  15. K-DUR [Concomitant]
     Dosage: 10 mEq, as needed
  16. DELTASONE [Concomitant]
     Dosage: 10 mg, as needed
  17. ZAROXOLYN [Concomitant]
     Dosage: 5 mg, as needed
  18. JANUVIA [Concomitant]
     Dosage: 50 mg, 1x/day

REACTIONS (1)
  - Headache [Not Recovered/Not Resolved]
